FAERS Safety Report 21198702 (Version 2)
Quarter: 2024Q1

REPORT INFORMATION
  Report Type: Spontaneous
  Country: US (occurrence: US)
  Receive Date: 20220811
  Receipt Date: 20240118
  Transmission Date: 20240410
  Serious: No
  Sender: FDA-Public Use
  Company Number: US-SA-SAC20220805000936

PATIENT
  Age: 23 Year
  Sex: Female

DRUGS (6)
  1. DUPIXENT [Suspect]
     Active Substance: DUPILUMAB
     Indication: Dermatitis atopic
     Dosage: 300 MG, QOW
     Route: 058
     Dates: start: 20220614
  2. DUPIXENT [Suspect]
     Active Substance: DUPILUMAB
     Indication: Dermatitis atopic
     Dosage: 300 MG, QOW
     Route: 058
     Dates: start: 20230727
  3. ALBUTEROL SULFATE [Concomitant]
     Active Substance: ALBUTEROL SULFATE
  4. NEXPLANON [Concomitant]
     Active Substance: ETONOGESTREL
  5. PHENTERMINE [Concomitant]
     Active Substance: PHENTERMINE
  6. TOPIRAMATE [Concomitant]
     Active Substance: TOPIRAMATE

REACTIONS (4)
  - Pruritus [Unknown]
  - Rash [Unknown]
  - Discomfort [Unknown]
  - Sleep disorder due to a general medical condition [Unknown]

NARRATIVE: CASE EVENT DATE: 20220101
